FAERS Safety Report 10347529 (Version 1)
Quarter: 2014Q3

REPORT INFORMATION
  Report Type: Spontaneous
  Country: US (occurrence: None)
  Receive Date: 20140728
  Receipt Date: 20140728
  Transmission Date: 20150326
  Serious: No
  Sender: FDA-Public Use
  Company Number: None

PATIENT
  Age: 59 Year
  Sex: Female
  Weight: 81.65 kg

DRUGS (1)
  1. HUMIRA [Suspect]
     Active Substance: ADALIMUMAB
     Indication: CROHN^S DISEASE
     Dosage: 40MG?Q14DAYS?SQ
     Dates: start: 20110511, end: 20140725

REACTIONS (2)
  - Rash [None]
  - Psoriasis [None]

NARRATIVE: CASE EVENT DATE: 20140725
